FAERS Safety Report 5159877-7 (Version None)
Quarter: 2006Q4

REPORT INFORMATION
  Report Type: 
  Country: None (occurrence: None)
  Receive Date: 20061129
  Receipt Date: 20060330
  Transmission Date: 20070319
  Serious: No
  Sender: FDA-Public Use
  Company Number: US-GLAXOSMITHKLINE-A0599735A

PATIENT
  Age: 47 Year
  Sex: Female

DRUGS (2)
  1. BUPROPION HYDROCHLORIDE [Suspect]
     Indication: DEPRESSION
     Dosage: 150MG TWICE PER DAY
     Route: 048
     Dates: end: 20060317
  2. NO CONCURRENT MEDICATION [Concomitant]

REACTIONS (3)
  - IRRITABILITY [None]
  - MOOD SWINGS [None]
  - TREMOR [None]
